FAERS Safety Report 7431008-X (Version None)
Quarter: 2011Q2

REPORT INFORMATION
  Report Type: 
  Country: None (occurrence: None)
  Receive Date: 20110421
  Receipt Date: 20110412
  Transmission Date: 20111010
  Serious: Yes (Other)
  Sender: FDA-Public Use
  Company Number: US-CEPHALON-2011001794

PATIENT
  Sex: Female
  Weight: 49 kg

DRUGS (1)
  1. ACTIQ [Suspect]
     Indication: MUSCULAR DYSTROPHY
     Route: 002
     Dates: start: 20020101

REACTIONS (4)
  - DRUG PRESCRIBING ERROR [None]
  - DRUG INEFFECTIVE FOR UNAPPROVED INDICATION [None]
  - LOSS OF CONSCIOUSNESS [None]
  - PRODUCT TASTE ABNORMAL [None]
